FAERS Safety Report 7052081-7 (Version None)
Quarter: 2010Q4

REPORT INFORMATION
  Report Type: 
  Country: None (occurrence: None)
  Receive Date: 20101019
  Receipt Date: 20101012
  Transmission Date: 20110411
  Serious: Yes (Hospitalization)
  Sender: FDA-Public Use
  Company Number: US-SANOFI-AVENTIS-2010SA052527

PATIENT
  Age: 48 Year
  Sex: Male

DRUGS (2)
  1. SOLOSTAR [Suspect]
  2. LANTUS [Suspect]
     Dosage: DOSE:14 UNIT(S)
     Route: 058

REACTIONS (3)
  - DRUG INEFFECTIVE [None]
  - HOSPITALISATION [None]
  - PRODUCT QUALITY ISSUE [None]
